FAERS Safety Report 17818645 (Version 2)
Quarter: 2020Q2

REPORT INFORMATION
  Report Type: Spontaneous
  Country: US (occurrence: US)
  Receive Date: 20200522
  Receipt Date: 20200602
  Transmission Date: 20200714
  Serious: Yes (Hospitalization)
  Sender: FDA-Public Use
  Company Number: US-PFIZER INC-2020199753

PATIENT
  Age: 32 Year
  Sex: Female

DRUGS (2)
  1. METHYLPREDNISOLONE SODIUM SUCCINATE. [Suspect]
     Active Substance: METHYLPREDNISOLONE SODIUM SUCCINATE
     Indication: IDIOPATHIC INTRACRANIAL HYPERTENSION
     Dosage: 250 MG, CYCLIC (EVERY 6 HOURS)
     Route: 042
  2. ACETAZOLAMIDE. [Concomitant]
     Active Substance: ACETAZOLAMIDE
     Indication: IDIOPATHIC INTRACRANIAL HYPERTENSION
     Dosage: 500 MG, 2X/DAY

REACTIONS (4)
  - Cerebrovascular accident [Recovering/Resolving]
  - Cerebral venous sinus thrombosis [Recovering/Resolving]
  - Subarachnoid haemorrhage [Recovering/Resolving]
  - Brain oedema [Recovering/Resolving]
